FAERS Safety Report 4614083-7 (Version None)
Quarter: 2005Q1

REPORT INFORMATION
  Report Type: 
  Country: None (occurrence: None)
  Receive Date: 20050316
  Receipt Date: 20050302
  Transmission Date: 20050727
  Serious: Yes (Hospitalization)
  Sender: FDA-Public Use
  Company Number: JP_041105135

PATIENT
  Age: 70 Year
  Sex: Female
  Weight: 40 kg

DRUGS (7)
  1. ZYPREXA [Suspect]
     Indication: SCHIZOPHRENIA
     Dosage: 5 MG DAY
     Dates: start: 20040716, end: 20041026
  2. GANATON (ITOPRIDE HYDROCHLORIDE) [Concomitant]
  3. CALCITRIOL [Concomitant]
  4. MAGNESIUM OXIDE [Concomitant]
  5. DIAZEPAM [Concomitant]
  6. LENDORM [Concomitant]
  7. PURSENNID [Concomitant]

REACTIONS (3)
  - ASPIRATION [None]
  - PARKINSON'S DISEASE [None]
  - PNEUMONIA [None]
